FAERS Safety Report 18002260 (Version 1)
Quarter: 2020Q3

REPORT INFORMATION
  Report Type: Spontaneous
  Country: FR (occurrence: FR)
  Receive Date: 20200709
  Receipt Date: 20200709
  Transmission Date: 20201103
  Serious: Yes (Death)
  Sender: FDA-Public Use
  Company Number: FR-CELGENEUS-FRA-20200701831

PATIENT
  Age: 66 Year
  Sex: Male
  Weight: 81.5 kg

DRUGS (3)
  1. VIDAZA [Suspect]
     Active Substance: AZACITIDINE
     Indication: ACUTE MYELOID LEUKAEMIA
     Route: 058
     Dates: start: 20200610, end: 20200615
  2. HYDREA [Concomitant]
     Active Substance: HYDROXYUREA
     Indication: ACUTE MYELOID LEUKAEMIA
     Route: 048
     Dates: start: 202005, end: 20200615
  3. DUPIXENT [Concomitant]
     Active Substance: DUPILUMAB
     Indication: DERMATOSIS
     Route: 058
     Dates: start: 202005

REACTIONS (1)
  - Cerebral haemorrhage [Fatal]

NARRATIVE: CASE EVENT DATE: 20200615
